FAERS Safety Report 19412218 (Version 2)
Quarter: 2021Q3

REPORT INFORMATION
  Report Type: Spontaneous
  Country: US (occurrence: US)
  Receive Date: 20210614
  Receipt Date: 20210705
  Transmission Date: 20211014
  Serious: Yes (Other)
  Sender: FDA-Public Use
  Company Number: US-GILEAD-2021-0535372

PATIENT
  Age: 63 Year
  Sex: Male

DRUGS (17)
  1. PREZISTA [Concomitant]
     Active Substance: DARUNAVIR ETHANOLATE
  2. ISENTRESS [Concomitant]
     Active Substance: RALTEGRAVIR POTASSIUM
  3. DHA [Concomitant]
     Active Substance: DIETARY SUPPLEMENT
  4. VIREAD [Suspect]
     Active Substance: TENOFOVIR DISOPROXIL FUMARATE
     Indication: HEPATITIS B
     Dosage: UNK
     Route: 065
     Dates: end: 202003
  5. VALACYCLOVIR HCL [Concomitant]
     Active Substance: VALACYCLOVIR HYDROCHLORIDE
  6. NORVIR [Concomitant]
     Active Substance: RITONAVIR
  7. ALPHA LIPOIC ACID [Concomitant]
     Active Substance: .ALPHA.-LIPOIC ACID
  8. COQ10 COMPLEX [Concomitant]
  9. VITAMIN B6 [Concomitant]
     Active Substance: PYRIDOXINE HYDROCHLORIDE
  10. GLUCOSAMINE SULFATE [Concomitant]
     Active Substance: GLUCOSAMINE SULFATE
  11. SELENIUM [Concomitant]
     Active Substance: SELENIUM
  12. VITAMIN D3 [Concomitant]
     Active Substance: CHOLECALCIFEROL
  13. N?ACETYL?L?CYSTEINE [Concomitant]
     Active Substance: ACETYLCYSTEINE
  14. CALCIUM CITRATE [Concomitant]
     Active Substance: CALCIUM CITRATE
  15. INTELENCE [Concomitant]
     Active Substance: ETRAVIRINE
  16. ZINC. [Concomitant]
     Active Substance: ZINC
  17. CHONDROITIN [Concomitant]
     Active Substance: CHONDROITIN

REACTIONS (3)
  - Virologic failure [Unknown]
  - Tooth loss [Unknown]
  - Tooth fracture [Unknown]
